FAERS Safety Report 5201868-1 (Version None)
Quarter: 2006Q4

REPORT INFORMATION
  Report Type: 
  Country: None (occurrence: None)
  Receive Date: 20061010
  Receipt Date: 20060609
  Transmission Date: 20070319
  Serious: Yes (Other)
  Sender: FDA-Public Use
  Company Number: 2006-06-0579

PATIENT
  Sex: Female

DRUGS (2)
  1. TEMODAR [Suspect]
     Indication: BRAIN NEOPLASM
     Dosage: UNKNOWN ORAL
     Route: 048
  2. RADIATION THERAPY [Concomitant]

REACTIONS (6)
  - ANOREXIA [None]
  - DIPLOPIA [None]
  - FATIGUE [None]
  - HEADACHE [None]
  - NAUSEA [None]
  - VISION BLURRED [None]
